FAERS Safety Report 15563889 (Version 2)
Quarter: 2018Q4

REPORT INFORMATION
  Report Type: Report from Study
  Country: None (occurrence: US)
  Receive Date: 20181030
  Receipt Date: 20181105
  Transmission Date: 20190205
  Serious: Yes (Death)
  Sender: FDA-Public Use
  Company Number: US-ABBVIE-18K-163-2536913-00

PATIENT
  Age: 82 Year
  Sex: Male
  Weight: 63.56 kg

DRUGS (2)
  1. SYNTHROID [Concomitant]
     Active Substance: LEVOTHYROXINE SODIUM
     Indication: HYPOTHYROIDISM
  2. HUMIRA [Suspect]
     Active Substance: ADALIMUMAB
     Indication: CROHN^S DISEASE
     Route: 058
     Dates: start: 20170107, end: 20181024

REACTIONS (2)
  - Intestinal gangrene [Fatal]
  - Intussusception [Fatal]

NARRATIVE: CASE EVENT DATE: 20181025
